FAERS Safety Report 7797883-4 (Version None)
Quarter: 2011Q4

REPORT INFORMATION
  Report Type: 
  Country: None (occurrence: None)
  Receive Date: 20111005
  Receipt Date: 20110928
  Transmission Date: 20120403
  Serious: Yes (Hospitalization, Other)
  Sender: FDA-Public Use
  Company Number: US-MERCK-1106USA00669

PATIENT
  Age: 69 Year
  Sex: Female

DRUGS (5)
  1. NEXIUM [Concomitant]
     Route: 065
     Dates: start: 20090101
  2. ALENDRONATE SODIUM [Suspect]
     Indication: OSTEOPOROSIS
     Route: 048
     Dates: start: 20090603, end: 20110101
  3. FOSAMAX [Suspect]
     Indication: OSTEOPOROSIS
     Route: 048
     Dates: start: 20000101, end: 20090602
  4. CALCIUM (UNSPECIFIED) [Concomitant]
     Route: 065
     Dates: start: 20010101
  5. VITAMIN D (UNSPECIFIED) [Concomitant]
     Route: 065
     Dates: start: 20010101

REACTIONS (20)
  - GALLBLADDER DISORDER [None]
  - FEMUR FRACTURE [None]
  - ARTHRITIS [None]
  - CHRONIC OBSTRUCTIVE PULMONARY DISEASE [None]
  - CALCIUM DEFICIENCY [None]
  - HERNIA [None]
  - VULVOVAGINAL CANDIDIASIS [None]
  - POLLAKIURIA [None]
  - BLOOD CHOLESTEROL INCREASED [None]
  - VITAMIN D DEFICIENCY [None]
  - UTERINE DISORDER [None]
  - MICTURITION URGENCY [None]
  - PANCREATIC DISORDER [None]
  - ARTHROPATHY [None]
  - ABDOMINAL PAIN [None]
  - MUSCULOSKELETAL CHEST PAIN [None]
  - SLEEP APNOEA SYNDROME [None]
  - RESTLESS LEGS SYNDROME [None]
  - GASTROOESOPHAGEAL REFLUX DISEASE [None]
  - DYSURIA [None]
